FAERS Safety Report 6236891-1 (Version None)
Quarter: 2009Q2

REPORT INFORMATION
  Report Type: 
  Country: None (occurrence: None)
  Receive Date: 20090619
  Receipt Date: 20090610
  Transmission Date: 20091009
  Serious: Yes (Other)
  Sender: FDA-Public Use
  Company Number: FR-PFIZER INC-2009225456

PATIENT
  Age: 39 Year

DRUGS (3)
  1. SILDENAFIL CITRATE [Suspect]
     Indication: PULMONARY HYPERTENSION
     Dosage: 20 MG, 3X/DAY
  2. CO-TRIMOXAZOLE [Concomitant]
     Dosage: UNK
  3. FLUCYTOSINE [Concomitant]
     Dosage: UNK

REACTIONS (4)
  - DYSPNOEA [None]
  - HYPOXIA [None]
  - PLEURAL EFFUSION [None]
  - PULMONARY OEDEMA [None]
